FAERS Safety Report 21512919 (Version 1)
Quarter: 2022Q4

REPORT INFORMATION
  Report Type: Other
  Country: US (occurrence: None)
  Receive Date: 20221027
  Receipt Date: 20221027
  Transmission Date: 20230113
  Serious: No
  Sender: FDA-Public Use
  Company Number: US-ROCHE-3207936

PATIENT
  Age: 62 Year
  Sex: Female

DRUGS (1)
  1. OCREVUS [Suspect]
     Active Substance: OCRELIZUMAB
     Indication: Relapsing multiple sclerosis
     Dosage: 300MG IV DAY 1 AND 15, THEN 600MG IV ONCE EVERY 6 MONTHS
     Route: 042
     Dates: start: 20200123

REACTIONS (1)
  - COVID-19 [Recovered/Resolved]
